FAERS Safety Report 7211289-8 (Version None)
Quarter: 2011Q1

REPORT INFORMATION
  Report Type: 
  Country: None (occurrence: None)
  Receive Date: 20110105
  Receipt Date: 20101227
  Transmission Date: 20110831
  Serious: Yes (Hospitalization, Other)
  Sender: FDA-Public Use
  Company Number: US-ABBOTT-10P-163-0694187-00

PATIENT
  Sex: Female
  Weight: 56.75 kg

DRUGS (3)
  1. PLAQUENIL [Concomitant]
     Indication: RHEUMATOID ARTHRITIS
  2. PREDNISONE [Concomitant]
     Indication: RHEUMATOID ARTHRITIS
     Dates: start: 20100101
  3. HUMIRA [Suspect]
     Indication: RHEUMATOID ARTHRITIS
     Dates: start: 20091201, end: 20100101

REACTIONS (10)
  - PNEUMONIA STREPTOCOCCAL [None]
  - WEIGHT INCREASED [None]
  - PNEUMONIA STAPHYLOCOCCAL [None]
  - EMPYEMA [None]
  - PURULENT DISCHARGE [None]
  - RENAL FAILURE [None]
  - SEPSIS [None]
  - BRONCHIECTASIS [None]
  - LOBAR PNEUMONIA [None]
  - ALCOHOL WITHDRAWAL SYNDROME [None]
